FAERS Safety Report 6111187-7 (Version None)
Quarter: 2009Q1

REPORT INFORMATION
  Report Type: 
  Country: None (occurrence: None)
  Receive Date: 20090309
  Receipt Date: 20090220
  Transmission Date: 20090719
  Serious: Yes (Hospitalization)
  Sender: FDA-Public Use
  Company Number: DSA_33292_2009

PATIENT
  Age: 75 Year
  Sex: Male

DRUGS (8)
  1. MONO-TILDIEM          (MONO-TILDIEM - DILTIAZEM [Suspect]
     Indication: DRUG USE FOR UNKNOWN INDICATION
     Dosage: (300 MG QD ORAL)
     Route: 048
     Dates: end: 20081117
  2. STAGID (STAGID - METFORMIN EMBONATE) [Suspect]
     Indication: DRUG USE FOR UNKNOWN INDICATION
     Dosage: (700 MG BID ORAL)
     Route: 048
     Dates: end: 20081118
  3. DEROXAT [Concomitant]
  4. NEULEPTIL /00038401/ [Concomitant]
  5. EQUANIL [Concomitant]
  6. NICARDIPINE HCL [Concomitant]
  7. SECTRAL [Concomitant]
  8. CRESTOR [Concomitant]

REACTIONS (3)
  - GENERAL PHYSICAL CONDITION ABNORMAL [None]
  - HYPOGLYCAEMIA [None]
  - MALAISE [None]
